FAERS Safety Report 20788985 (Version 1)
Quarter: 2022Q2

REPORT INFORMATION
  Report Type: Spontaneous
  Country: US (occurrence: None)
  Receive Date: 20220504
  Receipt Date: 20220504
  Transmission Date: 20220721
  Serious: Yes (Hospitalization)
  Sender: FDA-Public Use
  Company Number: None

PATIENT
  Sex: Female

DRUGS (13)
  1. ORENCIA [Suspect]
     Active Substance: ABATACEPT
     Indication: Anaemia
     Route: 058
     Dates: start: 20210505
  2. ALBUTEROL [Concomitant]
  3. COLESTIPOL [Concomitant]
  4. CYCLOBENZAPRINE [Concomitant]
     Active Substance: CYCLOBENZAPRINE
  5. HUMIRA PEN [Concomitant]
  6. LISINOPRIL [Concomitant]
  7. METFORMIN [Concomitant]
     Active Substance: METFORMIN HYDROCHLORIDE
  8. MONTELUKAST SODIUM [Concomitant]
  9. NOVOLOG INJ FLEXPEN [Concomitant]
  10. ORENCIA [Concomitant]
     Active Substance: ABATACEPT
  11. SYMBICORT [Concomitant]
  12. TEMAZEPAM [Concomitant]
     Active Substance: TEMAZEPAM
  13. TYLENOL [Concomitant]

REACTIONS (3)
  - Diabetic ketoacidosis [None]
  - Asthma [None]
  - Therapy interrupted [None]
